FAERS Safety Report 12217517 (Version 1)
Quarter: 2016Q1

REPORT INFORMATION
  Report Type: Report from Study
  Country: AU (occurrence: AU)
  Receive Date: 20160329
  Receipt Date: 20160329
  Transmission Date: 20160526
  Serious: Yes (Other)
  Sender: FDA-Public Use
  Company Number: AU-ROCHE-1730664

PATIENT

DRUGS (5)
  1. PANITUMUMAB [Suspect]
     Active Substance: PANITUMUMAB
     Indication: GASTROOESOPHAGEAL CANCER
     Route: 065
  2. DOCETAXEL. [Suspect]
     Active Substance: DOCETAXEL
     Indication: GASTROOESOPHAGEAL CANCER
     Route: 065
  3. CISPLATIN. [Suspect]
     Active Substance: CISPLATIN
     Indication: GASTROOESOPHAGEAL CANCER
     Route: 065
  4. FLUOROURACIL. [Suspect]
     Active Substance: FLUOROURACIL
     Indication: GASTROOESOPHAGEAL CANCER
     Route: 042
  5. CAPECITABINE. [Suspect]
     Active Substance: CAPECITABINE
     Indication: GASTROOESOPHAGEAL CANCER
     Dosage: CONTINUOUS
     Route: 065

REACTIONS (18)
  - Neutropenia [Unknown]
  - Decreased appetite [Unknown]
  - Febrile neutropenia [Unknown]
  - Infection [Unknown]
  - Stomatitis [Unknown]
  - Dermatitis acneiform [Unknown]
  - Hypersensitivity [Unknown]
  - Fatigue [Unknown]
  - Nausea [Unknown]
  - Diarrhoea [Unknown]
  - Palmar-plantar erythrodysaesthesia syndrome [Unknown]
  - Hypoacusis [Unknown]
  - Headache [Unknown]
  - Dysphagia [Unknown]
  - Lacrimation increased [Unknown]
  - Vomiting [Unknown]
  - Peripheral motor neuropathy [Unknown]
  - Hypomagnesaemia [Unknown]
